FAERS Safety Report 7051283-3 (Version None)
Quarter: 2010Q4

REPORT INFORMATION
  Report Type: 
  Country: None (occurrence: None)
  Receive Date: 20101019
  Receipt Date: 20100112
  Transmission Date: 20110411
  Serious: No
  Sender: FDA-Public Use
  Company Number: US-MYLANLABS-2010S1000490

PATIENT
  Age: 81 Year
  Sex: Female

DRUGS (10)
  1. CELEBREX [Suspect]
  2. LIPITOR [Suspect]
  3. PENICILLIN [Suspect]
  4. TRAZODONE HYDROCHLORIDE [Suspect]
  5. AMIODARONE HCL [Suspect]
  6. DULCOLAX [Suspect]
  7. CIPROFLOXACIN [Suspect]
  8. LODINE XL [Suspect]
  9. MECLOFENAMATE SODIUM [Suspect]
  10. ZOCOR [Suspect]

REACTIONS (1)
  - HYPERSENSITIVITY [None]
